FAERS Safety Report 23339021 (Version 1)
Quarter: 2023Q4

REPORT INFORMATION
  Report Type: Report from Study
  Country: US (occurrence: None)
  Receive Date: 20231226
  Receipt Date: 20231226
  Transmission Date: 20240110
  Serious: Yes (Life-Threatening, Other)
  Sender: FDA-Public Use
  Company Number: 2023A291321

PATIENT
  Sex: Female

DRUGS (1)
  1. FASENRA [Suspect]
     Active Substance: BENRALIZUMAB
     Route: 058

REACTIONS (7)
  - Terminal state [Unknown]
  - Cystic fibrosis [Unknown]
  - Viral infection [Unknown]
  - Bacterial infection [Unknown]
  - Asthma [Unknown]
  - Stress [Unknown]
  - Illness [Unknown]
